FAERS Safety Report 25157242 (Version 1)
Quarter: 2025Q2

REPORT INFORMATION
  Report Type: Spontaneous
  Country: SA (occurrence: SA)
  Receive Date: 20250403
  Receipt Date: 20250403
  Transmission Date: 20250717
  Serious: Yes (Death, Life-Threatening, Hospitalization, Other)
  Sender: ASTELLAS
  Company Number: SA-ASTELLAS-2025-AER-018362

PATIENT
  Age: 54 Year
  Sex: Female

DRUGS (3)
  1. TACROLIMUS [Suspect]
     Active Substance: TACROLIMUS
     Indication: Renal transplant
     Route: 065
  2. MYCOPHENOLATE MOFETIL [Concomitant]
     Active Substance: MYCOPHENOLATE MOFETIL
     Indication: Renal transplant
     Route: 065
  3. VALGANCICLOVIR [Concomitant]
     Active Substance: VALGANCICLOVIR
     Indication: Prophylaxis
     Route: 065

REACTIONS (7)
  - Hepatitis C [Fatal]
  - Acute hepatic failure [Fatal]
  - Gastrointestinal haemorrhage [Fatal]
  - Septic shock [Fatal]
  - Hypertransaminasaemia [Not Recovered/Not Resolved]
  - Liver function test increased [Not Recovered/Not Resolved]
  - Condition aggravated [Not Recovered/Not Resolved]
